FAERS Safety Report 6580416-8 (Version None)
Quarter: 2010Q1

REPORT INFORMATION
  Report Type: 
  Country: None (occurrence: None)
  Receive Date: 20100212
  Receipt Date: 20100205
  Transmission Date: 20100710
  Serious: Yes (Other)
  Sender: FDA-Public Use
  Company Number: PHHY2009DE33462

PATIENT
  Sex: Female

DRUGS (1)
  1. FEMARA [Suspect]
     Indication: BREAST CANCER
     Dosage: UNK
     Route: 048
     Dates: start: 20060501

REACTIONS (8)
  - CATARACT [None]
  - KERATOCONJUNCTIVITIS SICCA [None]
  - MACULAR DEGENERATION [None]
  - PHOTOPSIA [None]
  - RETINOPATHY HYPERTENSIVE [None]
  - VISION BLURRED [None]
  - VITREOUS DETACHMENT [None]
  - VITREOUS OPACITIES [None]
